FAERS Safety Report 4809332-6 (Version None)
Quarter: 2005Q4

REPORT INFORMATION
  Report Type: 
  Country: None (occurrence: None)
  Receive Date: 20051025
  Receipt Date: 20051017
  Transmission Date: 20060501
  Serious: Yes (Hospitalization, Other)
  Sender: FDA-Public Use
  Company Number: US-ABBOTT-05P-163-0314190-00

PATIENT
  Sex: Female

DRUGS (5)
  1. KALETRA [Suspect]
     Indication: HIV INFECTION
     Route: 048
     Dates: start: 20040701, end: 20050810
  2. KALETRA [Suspect]
     Route: 048
     Dates: start: 20050814, end: 20050830
  3. SPIRONOLACTONE [Concomitant]
     Indication: DIURETIC THERAPY
     Route: 048
     Dates: start: 20050810
  4. TRUVADA [Concomitant]
     Indication: HIV INFECTION
     Route: 048
     Dates: start: 20040701, end: 20050810
  5. TRUVADA [Concomitant]
     Route: 048
     Dates: start: 20050814, end: 20050830

REACTIONS (6)
  - CLOSTRIDIUM COLITIS [None]
  - DYSPNOEA [None]
  - LUNG NEOPLASM [None]
  - NAUSEA [None]
  - PULMONARY TOXICITY [None]
  - VOMITING [None]
